FAERS Safety Report 7890623-X (Version None)
Quarter: 2011Q4

REPORT INFORMATION
  Report Type: 
  Country: None (occurrence: None)
  Receive Date: 20111103
  Receipt Date: 20110722
  Transmission Date: 20120403
  Serious: No
  Sender: FDA-Public Use
  Company Number: US-AMGEN-USASP2011037393

PATIENT
  Age: 54 Year
  Sex: Female
  Weight: 71.655 kg

DRUGS (5)
  1. CALCIUM +D                         /00188401/ [Concomitant]
  2. PREDNISONE [Concomitant]
     Dosage: 1 MG, UNK
  3. ENBREL [Suspect]
     Indication: PRODUCT USED FOR UNKNOWN INDICATION
     Dosage: 50 MG, QWK
     Route: 058
  4. CELEBREX [Concomitant]
     Dosage: 100 MG, UNK
  5. IRON [Concomitant]
     Dosage: 25 MG, UNK

REACTIONS (1)
  - NASOPHARYNGITIS [None]
